FAERS Safety Report 6427463-4 (Version None)
Quarter: 2009Q4

REPORT INFORMATION
  Report Type: 
  Country: None (occurrence: None)
  Receive Date: 20091104
  Receipt Date: 20091021
  Transmission Date: 20100525
  Serious: Yes (Other)
  Sender: FDA-Public Use
  Company Number: PHHY2009HR46954

PATIENT
  Age: 21 Year
  Sex: Female

DRUGS (1)
  1. TEGRETOL [Suspect]
     Indication: EPILEPSY
     Dosage: 2 X 200 MG/DAY

REACTIONS (2)
  - DRUG EXPOSURE DURING PREGNANCY [None]
  - EPISIOTOMY [None]
